FAERS Safety Report 4777071-6 (Version None)
Quarter: 2005Q3

REPORT INFORMATION
  Report Type: 
  Country: None (occurrence: None)
  Receive Date: 20050915
  Receipt Date: 20050907
  Transmission Date: 20060218
  Serious: Yes (Death)
  Sender: FDA-Public Use
  Company Number: PL-2005-018534

PATIENT
  Age: 73 Year
  Sex: Male
  Weight: 79 kg

DRUGS (12)
  1. FLUDARABINE PHOSPHATE [Suspect]
     Indication: CHRONIC LYMPHOCYTIC LEUKAEMIA
     Dosage: 47 MG, CYCLES, INTRAVENOUS
     Route: 042
     Dates: start: 20050712, end: 20050714
  2. CYCLOPHOSPHAMIDE [Suspect]
     Indication: CHRONIC LYMPHOCYTIC LEUKAEMIA
     Dosage: 470 MG, CYCLES, INTRAVENOUS
     Route: 042
     Dates: start: 20050712, end: 20050724
  3. DOXAZOSIN [Concomitant]
  4. ALLOPURINOL [Concomitant]
  5. ACYCLOVIR [Concomitant]
  6. ISOSORBIDE DINITRATE [Concomitant]
  7. TRIMETAZIDINE [Concomitant]
  8. CAPTOPRIL [Concomitant]
  9. DIGOXIN [Concomitant]
  10. ACETYLSALICYLIC ACID SRT [Concomitant]
  11. VITAMIN A+E (TOCOPHERYL ACETATE) [Concomitant]
  12. CO-TRIMOXAZOLE [Concomitant]

REACTIONS (1)
  - CEREBROVASCULAR ACCIDENT [None]
